FAERS Safety Report 20231497 (Version 1)
Quarter: 2021Q4

REPORT INFORMATION
  Report Type: Spontaneous
  Country: US (occurrence: None)
  Receive Date: 20211223
  Receipt Date: 20211223
  Transmission Date: 20220303
  Serious: Yes (Life-Threatening, Hospitalization)
  Sender: FDA-Public Use
  Company Number: None

PATIENT
  Age: 71 Year
  Sex: Male
  Weight: 126.27 kg

DRUGS (2)
  1. BAMLANIVIMAB [Suspect]
     Active Substance: BAMLANIVIMAB
     Indication: Exposure to SARS-CoV-2
     Dosage: FREQUENCY : ONCE;?
     Route: 041
  2. ETESEVIMAB [Suspect]
     Active Substance: ETESEVIMAB
     Indication: COVID-19
     Dosage: FREQUENCY : ONCE;?
     Route: 041

REACTIONS (3)
  - Unresponsive to stimuli [None]
  - Cyanosis [None]
  - Cyanosis [None]

NARRATIVE: CASE EVENT DATE: 20211223
